FAERS Safety Report 15431664 (Version 1)
Quarter: 2018Q3

REPORT INFORMATION
  Report Type: Report from Study
  Country: BE (occurrence: BE)
  Receive Date: 20180926
  Receipt Date: 20180926
  Transmission Date: 20181010
  Serious: Yes (Hospitalization)
  Sender: FDA-Public Use
  Company Number: BE-SAKK-2018SA258610AA

PATIENT
  Age: 68 Year
  Sex: Female

DRUGS (2)
  1. INSULIN GLARGINE [Suspect]
     Active Substance: INSULIN GLARGINE
     Indication: TYPE 2 DIABETES MELLITUS
     Dosage: UNK, QD (30 (NOS))
     Dates: start: 20180628
  2. GLURENORM [Concomitant]
     Active Substance: GLIQUIDONE
     Indication: TYPE 2 DIABETES MELLITUS
     Dosage: UNK, TID (HALF (NOS))

REACTIONS (2)
  - Phlebitis [Unknown]
  - Pulmonary oedema [Unknown]
